FAERS Safety Report 18960630 (Version 1)
Quarter: 2021Q1

REPORT INFORMATION
  Report Type: Spontaneous
  Country: IT (occurrence: IT)
  Receive Date: 20210303
  Receipt Date: 20210303
  Transmission Date: 20210420
  Serious: Yes (Other)
  Sender: FDA-Public Use
  Company Number: IT-SUN PHARMACEUTICAL INDUSTRIES LTD-2021RR-283494

PATIENT
  Age: 50 Year
  Sex: Female

DRUGS (6)
  1. OCTREOTIDE. [Suspect]
     Active Substance: OCTREOTIDE
     Indication: METASTASES TO BREAST
  2. TEMOZOLOMIDE. [Suspect]
     Active Substance: TEMOZOLOMIDE
     Indication: METASTASES TO BREAST
  3. CAPECITABINE. [Suspect]
     Active Substance: CAPECITABINE
     Indication: METASTASES TO BREAST
  4. TEMOZOLOMIDE. [Suspect]
     Active Substance: TEMOZOLOMIDE
     Indication: NEUROENDOCRINE TUMOUR OF THE LUNG
     Dosage: 150 MILLIGRAM/SQ. METER, FOR 5 DAYS
     Route: 065
     Dates: start: 201301
  5. CAPECITABINE. [Suspect]
     Active Substance: CAPECITABINE
     Indication: NEUROENDOCRINE TUMOUR OF THE LUNG
     Dosage: 1500 MILLIGRAM/SQ. METER/DIE FOR 14 DAYS
     Route: 065
     Dates: start: 201301
  6. OCTREOTIDE. [Suspect]
     Active Substance: OCTREOTIDE
     Indication: NEUROENDOCRINE TUMOUR OF THE LUNG
     Dosage: 30 MILLIGRAM, DAILY
     Route: 058

REACTIONS (3)
  - Thrombocytopenia [Unknown]
  - Malaise [Unknown]
  - Disease progression [Unknown]
